FAERS Safety Report 24822844 (Version 1)
Quarter: 2025Q1

REPORT INFORMATION
  Report Type: Spontaneous
  Country: US (occurrence: US)
  Receive Date: 20250109
  Receipt Date: 20250109
  Transmission Date: 20250409
  Serious: Yes (Hospitalization, Other)
  Sender: ALEMBIC
  Company Number: US-ALEMBIC PHARMACUETICALS LIMITED-2024SCAL001959

PATIENT

DRUGS (1)
  1. LOSARTAN POTASSIUM [Suspect]
     Active Substance: LOSARTAN POTASSIUM
     Indication: Hypertension
     Route: 065

REACTIONS (15)
  - Drug-induced liver injury [Unknown]
  - Hepatic necrosis [Unknown]
  - Portal tract inflammation [Unknown]
  - Dysgeusia [Unknown]
  - Fatigue [Unknown]
  - Thinking abnormal [Unknown]
  - Alanine aminotransferase increased [Recovering/Resolving]
  - Aspartate aminotransferase increased [Recovering/Resolving]
  - Blood alkaline phosphatase increased [Unknown]
  - Prothrombin time prolonged [Unknown]
  - Blood bilirubin increased [Recovering/Resolving]
  - Blood albumin decreased [Unknown]
  - International normalised ratio increased [Unknown]
  - Acute hepatic failure [Unknown]
  - Cholestasis [Unknown]
